FAERS Safety Report 12379631 (Version 1)
Quarter: 2016Q2

REPORT INFORMATION
  Report Type: Spontaneous
  Country: FR (occurrence: FR)
  Receive Date: 20160518
  Receipt Date: 20160518
  Transmission Date: 20160815
  Serious: Yes (Hospitalization)
  Sender: FDA-Public Use
  Company Number: FR-ROCHE-1757018

PATIENT
  Age: 44 Year
  Sex: Male

DRUGS (5)
  1. KETOPROFEN. [Suspect]
     Active Substance: KETOPROFEN
     Indication: SCIATICA
     Route: 048
     Dates: start: 20160310
  2. VALIUM [Suspect]
     Active Substance: DIAZEPAM
     Indication: SCIATICA
     Route: 048
     Dates: start: 20160310
  3. OXYGEN. [Suspect]
     Active Substance: OXYGEN
     Indication: SCIATICA
     Dosage: 9L/MIN
     Route: 055
     Dates: start: 20160325, end: 20160325
  4. SKENAN [Suspect]
     Active Substance: MORPHINE SULFATE
     Indication: SCIATICA
     Route: 048
     Dates: start: 20160310
  5. NITROUS MONOXIDE [Suspect]
     Active Substance: NITROUS OXIDE
     Indication: SCIATICA
     Dosage: 9L/MIN
     Route: 055
     Dates: start: 20160325, end: 20160325

REACTIONS (4)
  - Respiratory disorder [None]
  - Hypotonia [None]
  - Tetany [None]
  - Generalised tonic-clonic seizure [Recovered/Resolved]

NARRATIVE: CASE EVENT DATE: 20160325
